FAERS Safety Report 4658482-6 (Version None)
Quarter: 2005Q2

REPORT INFORMATION
  Report Type: 
  Country: None (occurrence: None)
  Receive Date: 20050511
  Receipt Date: 20050504
  Transmission Date: 20051028
  Serious: Yes (Other)
  Sender: FDA-Public Use
  Company Number: GB-GLAXOSMITHKLINE-B0380386A

PATIENT
  Age: 45 Year
  Sex: Male
  Weight: 81 kg

DRUGS (4)
  1. ABACAVIR [Suspect]
     Indication: HIV INFECTION
     Route: 048
     Dates: start: 20050215, end: 20050412
  2. KALETRA [Concomitant]
     Indication: HIV INFECTION
     Dosage: 3TAB TWICE PER DAY
     Route: 048
     Dates: start: 20030401, end: 20050412
  3. TENOFOVIR [Concomitant]
     Indication: HIV INFECTION
     Dosage: 245MG PER DAY
     Route: 065
     Dates: start: 20030401, end: 20050415
  4. DIDANOSINE [Concomitant]
     Indication: HIV INFECTION
     Dosage: 250MG PER DAY
     Route: 048
     Dates: start: 20030401, end: 20050215

REACTIONS (6)
  - DYSPNOEA [None]
  - EPISTAXIS [None]
  - MALAISE [None]
  - MYALGIA [None]
  - PALPITATIONS [None]
  - RASH [None]
